FAERS Safety Report 5488091-0 (Version None)
Quarter: 2007Q4

REPORT INFORMATION
  Report Type: 
  Country: None (occurrence: None)
  Receive Date: 20071017
  Receipt Date: 20071002
  Transmission Date: 20080405
  Serious: Yes (Other)
  Sender: FDA-Public Use
  Company Number: JP-PURDUE-MAG_2007_0000577

PATIENT
  Age: 40 Year
  Sex: Female

DRUGS (15)
  1. THEOPHYLLINE [Suspect]
     Indication: ASTHMA
     Dosage: 400 MG, DAILY
     Route: 048
     Dates: start: 20070502, end: 20070509
  2. MONTELUKAST SODIUM [Concomitant]
     Indication: ASTHMA
     Dosage: 10 MG, DAILY
     Route: 048
     Dates: start: 20070502, end: 20070509
  3. ADRENOCORTICOTROPHIC HORMONE [Concomitant]
     Indication: INTERSTITIAL LUNG DISEASE
     Dosage: 1000 MG, DAILY
     Route: 042
     Dates: start: 20070801, end: 20070801
  4. FAMOTIDINE [Concomitant]
     Indication: GASTRITIS PROPHYLAXIS
     Dosage: 20 MG, DAILY
     Route: 048
     Dates: start: 20070502
  5. POVIDONE IODINE [Concomitant]
     Indication: PHARYNGITIS
     Dosage: UNK, UNK
     Route: 002
     Dates: start: 20070502
  6. MEROPENEM [Concomitant]
     Indication: PNEUMONIA
     Dosage: 1 GRAM, DAILY
     Route: 042
     Dates: start: 20070502, end: 20070507
  7. METHYLPREDNISOLONE SODIUM SUCCINATE [Concomitant]
     Indication: INTERSTITIAL LUNG DISEASE
     Dosage: 1000 MG, DAILY
     Route: 042
     Dates: start: 20070502, end: 20070504
  8. PREDNISOLONE ACETATE [Concomitant]
     Indication: INTERSTITIAL LUNG DISEASE
     Dosage: 70 MG, DAILY
     Route: 042
     Dates: start: 20070505, end: 20070509
  9. PREDNISOLONE ACETATE [Concomitant]
     Dosage: 60 MG, DAILY
     Route: 042
     Dates: start: 20070510, end: 20070510
  10. PREDNISOLONE [Concomitant]
     Indication: INTERSTITIAL LUNG DISEASE
     Dosage: 50 MG, DAILY
     Route: 048
  11. PREDNISOLONE [Concomitant]
     Dosage: 45 MG, DAILY
     Route: 048
  12. PREDNISOLONE [Concomitant]
     Dosage: 40 MG, DAILY
     Route: 048
  13. PREDNISOLONE [Concomitant]
     Dosage: 37.5 MG, DAILY
     Route: 048
  14. PREDNISOLONE [Concomitant]
     Dosage: 35 MG, DAILY
     Route: 048
  15. FOSFLUCONAZOLE [Concomitant]
     Indication: ANTIFUNGAL PROPHYLAXIS
     Dosage: 200 MG, DAILY
     Route: 042
     Dates: start: 20070502, end: 20070508

REACTIONS (2)
  - BLOOD CREATINE PHOSPHOKINASE INCREASED [None]
  - MYALGIA [None]
